FAERS Safety Report 9649143 (Version 1)
Quarter: 2013Q4

REPORT INFORMATION
  Report Type: Spontaneous
  Country: US (occurrence: US)
  Receive Date: 20131028
  Receipt Date: 20131028
  Transmission Date: 20140711
  Serious: No
  Sender: FDA-Public Use
  Company Number: -SAAVPROD-POMP-1003144

PATIENT
  Age: 36 Year
  Sex: Female
  Weight: 48.98 kg

DRUGS (8)
  1. ALGLUCOSIDASE ALFA [Suspect]
     Indication: GLYCOGEN STORAGE DISEASE TYPE II
     Dosage: 1000 MG, Q2W
     Route: 042
     Dates: start: 20110405
  2. DIPHENHYDRAMINE [Concomitant]
  3. BUPROPION HYDROCHLORIDE [Concomitant]
  4. SALBUTAMOL [Concomitant]
  5. FUROSEMIDE SODIUM [Concomitant]
  6. POTASSIUM CHLORIDE [Concomitant]
  7. QUETIAPINE FUMARATE [Concomitant]
  8. CLONAZEPAM [Concomitant]

REACTIONS (1)
  - Pyrexia [Unknown]
